FAERS Safety Report 11070660 (Version 1)
Quarter: 2020Q3

REPORT INFORMATION
  Report Type: Report from Study
  Country: PL (occurrence: PL)
  Receive Date: 20150427
  Receipt Date: 20150427
  Transmission Date: 20201104
  Serious: Yes (Life-Threatening)
  Sender: FDA-Public Use
  Company Number: PL-JNJFOC-20140403387

PATIENT
  Age: 80 Year
  Sex: Male
  Weight: 85.7 kg

DRUGS (4)
  1. IBRUTINIB [Suspect]
     Active Substance: IBRUTINIB
     Route: 048
  2. IBRUTINIB [Suspect]
     Active Substance: IBRUTINIB
     Indication: CHRONIC LYMPHOCYTIC LEUKAEMIA
     Dosage: MEDICATION KIT NUMBERS, 57732, 59866, 63403
     Route: 048
     Dates: start: 20130207, end: 20140331
  3. BENDAMUSTINE [Suspect]
     Active Substance: BENDAMUSTINE
     Indication: CHRONIC LYMPHOCYTIC LEUKAEMIA
     Dosage: MEDICATION KIT NUMBER 10755
     Route: 042
     Dates: start: 20130207, end: 20130626
  4. RITUXIMAB. [Suspect]
     Active Substance: RITUXIMAB
     Indication: CHRONIC LYMPHOCYTIC LEUKAEMIA
     Dosage: MEDICATION KIT NUMBER 30413, 30414
     Route: 042
     Dates: start: 20130206, end: 20130625

REACTIONS (1)
  - Neutropenia [Recovered/Resolved]

NARRATIVE: CASE EVENT DATE: 20140401
